FAERS Safety Report 5820793-6 (Version None)
Quarter: 2008Q3

REPORT INFORMATION
  Report Type: 
  Country: None (occurrence: None)
  Receive Date: 20080724
  Receipt Date: 20080507
  Transmission Date: 20090109
  Serious: No
  Sender: FDA-Public Use
  Company Number: A0727746A

PATIENT
  Sex: Female

DRUGS (1)
  1. AVANDIA [Suspect]
     Indication: DRUG USE FOR UNKNOWN INDICATION
     Dosage: 8MG PER DAY

REACTIONS (3)
  - DRUG EFFECT DECREASED [None]
  - THERAPY REGIMEN CHANGED [None]
  - TREATMENT NONCOMPLIANCE [None]
